FAERS Safety Report 17676136 (Version 1)
Quarter: 2020Q2

REPORT INFORMATION
  Report Type: Spontaneous
  Country: PT (occurrence: PT)
  Receive Date: 20200416
  Receipt Date: 20200416
  Transmission Date: 20200714
  Serious: Yes (Hospitalization)
  Sender: FDA-Public Use
  Company Number: PT-ALVOGEN-2020-ALVOGEN-108051

PATIENT
  Age: 72 Year
  Sex: Female

DRUGS (3)
  1. SILDENAFIL. [Suspect]
     Active Substance: SILDENAFIL
     Indication: PULMONARY ARTERIAL HYPERTENSION
     Dosage: 25 MG, TID
     Route: 065
  2. BOSENTAN. [Suspect]
     Active Substance: BOSENTAN
     Indication: PULMONARY ARTERIAL HYPERTENSION
     Dosage: 62.5 MG TWICE DAILY
     Route: 048
  3. SILDENAFIL. [Suspect]
     Active Substance: SILDENAFIL
     Indication: PULMONARY ARTERIAL HYPERTENSION
     Route: 065

REACTIONS (12)
  - Fatigue [Unknown]
  - Cardiac septal hypertrophy [Unknown]
  - Pleural effusion [Unknown]
  - Acute pulmonary oedema [Recovering/Resolving]
  - Dyspnoea [Unknown]
  - Hilar lymphadenopathy [Unknown]
  - Pulmonary veno-occlusive disease [Unknown]
  - Lung opacity [Unknown]
  - Lymphadenopathy mediastinal [Unknown]
  - Hypoxia [Unknown]
  - Pleuritic pain [Unknown]
  - Orthopnoea [Unknown]
